FAERS Safety Report 6492946-8 (Version None)
Quarter: 2009Q4

REPORT INFORMATION
  Report Type: 
  Country: None (occurrence: None)
  Receive Date: 20091214
  Receipt Date: 20091209
  Transmission Date: 20100525
  Serious: Yes (Life-Threatening, Hospitalization)
  Sender: FDA-Public Use
  Company Number: PHEH2009US13356

PATIENT
  Sex: Male
  Weight: 62.5 kg

DRUGS (7)
  1. GLEEVEC [Suspect]
     Indication: MYELOFIBROSIS
     Dosage: 400 MG, QD
     Dates: start: 20090924, end: 20091003
  2. COUMADIN [Concomitant]
     Dosage: UNK, UNK
     Route: 065
  3. VICODIN [Concomitant]
     Dosage: UNK, UNK
     Route: 065
  4. LOPRESSOR [Concomitant]
     Dosage: UNK, UNK
     Route: 065
  5. NITROBID                                /BRA/ [Concomitant]
     Dosage: UNK, UNK
     Route: 065
  6. SYNTHROID [Concomitant]
     Dosage: UNK, UNK
     Route: 065
  7. ULTRAM [Concomitant]
     Dosage: UNK, UNK
     Route: 065

REACTIONS (3)
  - HALLUCINATION [None]
  - SUICIDAL IDEATION [None]
  - TREATMENT NONCOMPLIANCE [None]
